FAERS Safety Report 8264381-3 (Version None)
Quarter: 2012Q2

REPORT INFORMATION
  Report Type: 
  Country: None (occurrence: None)
  Receive Date: 20120403
  Receipt Date: 20120320
  Transmission Date: 20120825
  Serious: Yes (Hospitalization, Other)
  Sender: FDA-Public Use
  Company Number: CIP11002926

PATIENT
  Age: 63 Year
  Sex: Female

DRUGS (11)
  1. COMBIVENT [Concomitant]
  2. FISH OIL (FISH OIL) [Concomitant]
  3. MULTIVITAMIN /00831701/ (VITAMINS NOS) [Concomitant]
  4. BONIVA [Suspect]
     Dosage: ORAL
     Route: 048
  5. HYDROCHLOROTHIAZIDE [Concomitant]
  6. FLAXSEED OIL (LINUM USITATISSIMUM SEED OIL) [Concomitant]
  7. VITAMIN D [Concomitant]
  8. ACTONEL [Suspect]
     Dosage: ORAL
     Route: 048
  9. ZOLOFT [Concomitant]
  10. POTASSIUM GLUCONATE TAB [Concomitant]
  11. CALCIUM CARBONATE [Concomitant]

REACTIONS (2)
  - STRESS FRACTURE [None]
  - FEMUR FRACTURE [None]
